FAERS Safety Report 10840514 (Version 1)
Quarter: 2015Q1

REPORT INFORMATION
  Report Type: Report from Study
  Country: US (occurrence: US)
  Receive Date: 20150220
  Receipt Date: 20150220
  Transmission Date: 20150721
  Serious: No
  Sender: FDA-Public Use
  Company Number: US-ABBVIE-14P-163-1239293-00

PATIENT
  Sex: Male
  Weight: 94.43 kg

DRUGS (2)
  1. HUMIRA [Suspect]
     Active Substance: ADALIMUMAB
     Indication: PSORIASIS
     Dates: start: 2007, end: 2009
  2. UNKNOWN BLOOD PRESSURE MEDICATION  (NON-ABBVIE) [Concomitant]
     Indication: BLOOD PRESSURE

REACTIONS (1)
  - Injection site pain [Recovered/Resolved]
